FAERS Safety Report 8165392-9 (Version None)
Quarter: 2012Q1

REPORT INFORMATION
  Report Type: 
  Country: None (occurrence: None)
  Receive Date: 20120103
  Receipt Date: 20110928
  Transmission Date: 20120608
  Serious: No
  Sender: FDA-Public Use
  Company Number: AE-2011-001907

PATIENT
  Age: 52 Year
  Sex: Male
  Weight: 74.8435 kg

DRUGS (4)
  1. INCIVEK [Suspect]
     Dosage: 2250 MG, (750 MG, 1 IN  8 HR) ORAL
     Route: 048
     Dates: start: 20110924
  2. DIAZEPAM [Concomitant]
  3. PEGASYS [Concomitant]
  4. RIBAVIRIN [Concomitant]

REACTIONS (5)
  - INFLUENZA LIKE ILLNESS [None]
  - DECREASED APPETITE [None]
  - PAIN [None]
  - HEADACHE [None]
  - NAUSEA [None]
